FAERS Safety Report 14621995 (Version 1)
Quarter: 2018Q1

REPORT INFORMATION
  Report Type: Spontaneous
  Country: US (occurrence: US)
  Receive Date: 20180310
  Receipt Date: 20180310
  Transmission Date: 20180509
  Serious: Yes (Hospitalization)
  Sender: FDA-Public Use
  Company Number: US-ALKERMES INC.-ALK-2018-001395

PATIENT
  Age: 50 Year
  Sex: Female

DRUGS (2)
  1. VIVITROL [Suspect]
     Active Substance: NALTREXONE
     Dosage: 380 MG, QMO
     Route: 030
  2. VIVITROL [Suspect]
     Active Substance: NALTREXONE
     Indication: DRUG DEPENDENCE
     Dosage: 380 MG, QMO
     Route: 030
     Dates: start: 201611

REACTIONS (6)
  - Hypertension [Unknown]
  - Dysarthria [Unknown]
  - Transient ischaemic attack [Unknown]
  - Inadequate analgesia [Unknown]
  - Headache [Unknown]
  - Agitation [Unknown]

NARRATIVE: CASE EVENT DATE: 20180304
